FAERS Safety Report 8345660 (Version 2)
Quarter: 2013Q1

REPORT INFORMATION
  Report Type: Spontaneous
  Country: CA (occurrence: CA)
  Receive Date: 20120120
  Receipt Date: 20130321
  Transmission Date: 20140127
  Serious: Yes (Other)
  Sender: FDA-Public Use
  Company Number: CA-JNJFOC-20120106792

PATIENT
  Sex: Female
  Weight: 52.2 kg

DRUGS (5)
  1. REMICADE [Suspect]
     Indication: RHEUMATOID ARTHRITIS
     Dosage: 37TH INFUSION
     Route: 042
     Dates: start: 20120109
  2. REMICADE [Suspect]
     Indication: RHEUMATOID ARTHRITIS
     Route: 042
     Dates: start: 20070227
  3. METHOTREXATE [Concomitant]
     Route: 048
  4. FOLIC ACID [Concomitant]
     Dosage: 6/7 DAYS A WEEK
     Route: 048
  5. ACLASTA [Concomitant]
     Route: 042

REACTIONS (3)
  - Vein disorder [Not Recovered/Not Resolved]
  - Infusion related reaction [Not Recovered/Not Resolved]
  - Sinus congestion [Recovered/Resolved]
